FAERS Safety Report 7221009-9 (Version None)
Quarter: 2011Q1

REPORT INFORMATION
  Report Type: 
  Country: None (occurrence: None)
  Receive Date: 20110112
  Receipt Date: 20110111
  Transmission Date: 20110831
  Serious: Yes (Other)
  Sender: FDA-Public Use
  Company Number: IN-BRISTOL-MYERS SQUIBB COMPANY-15479512

PATIENT

DRUGS (2)
  1. WARFARIN SODIUM [Suspect]
  2. ONGLYZA [Suspect]

REACTIONS (1)
  - HAEMORRHAGE [None]
